FAERS Safety Report 6779274-8 (Version None)
Quarter: 2010Q2

REPORT INFORMATION
  Report Type: 
  Country: None (occurrence: None)
  Receive Date: 20100618
  Receipt Date: 20100611
  Transmission Date: 20101027
  Serious: Yes (Hospitalization)
  Sender: FDA-Public Use
  Company Number: US-ROCHE-709611

PATIENT
  Sex: Male
  Weight: 81.1 kg

DRUGS (5)
  1. BEVACIZUMAB [Suspect]
     Indication: GLIOBLASTOMA
     Dosage: THIS CYCLE STARTED ON 30 APRIL 2010
     Route: 042
     Dates: start: 20100205
  2. TOPOTECAN [Suspect]
     Indication: DRUG USE FOR UNKNOWN INDICATION
     Dosage: FREQ: 5 DAY, THIS CYCLE STARTED ON 01 MAY 2010
     Route: 065
     Dates: start: 20100205, end: 20100505
  3. TEMODAR [Suspect]
     Indication: DRUG USE FOR UNKNOWN INDICATION
     Dosage: FREQ: X 5 DAY. THIS CYCLE STARTED ON 30 APRIL 2010
     Route: 065
     Dates: start: 20100205, end: 20100501
  4. KEPPRA [Concomitant]
  5. OMEPRAZOLE [Concomitant]

REACTIONS (2)
  - GRAND MAL CONVULSION [None]
  - SUBARACHNOID HAEMORRHAGE [None]
